FAERS Safety Report 7217519-0 (Version None)
Quarter: 2010Q4

REPORT INFORMATION
  Report Type: 
  Country: None (occurrence: None)
  Receive Date: 20101126
  Receipt Date: 20101007
  Transmission Date: 20110411
  Serious: No
  Sender: FDA-Public Use
  Company Number: 316388

PATIENT
  Age: 43 Year
  Sex: Male

DRUGS (1)
  1. VICTOZA [Suspect]
     Indication: PRODUCT USED FOR UNKNOWN INDICATION
     Dosage: (0.6 MG, QD, SUBCUTANEOUS) (1.2 MG, QD) (1.8 MG, QD)
     Route: 058
     Dates: start: 20100707

REACTIONS (2)
  - DIARRHOEA [None]
  - WEIGHT DECREASED [None]
